FAERS Safety Report 5680449-X (Version None)
Quarter: 2008Q1

REPORT INFORMATION
  Report Type: 
  Country: None (occurrence: None)
  Receive Date: 20080326
  Receipt Date: 20080320
  Transmission Date: 20080703
  Serious: Yes (Hospitalization)
  Sender: FDA-Public Use
  Company Number: A0717395A

PATIENT
  Age: 55 Year
  Sex: Male

DRUGS (1)
  1. AVANDIA [Suspect]
     Dates: start: 20010101, end: 20071001

REACTIONS (5)
  - ACUTE CORONARY SYNDROME [None]
  - CHEST PAIN [None]
  - CORONARY ARTERY DISEASE [None]
  - INJURY [None]
  - LEFT VENTRICULAR DYSFUNCTION [None]
